FAERS Safety Report 20861403 (Version 1)
Quarter: 2022Q2

REPORT INFORMATION
  Report Type: Spontaneous
  Country: US (occurrence: US)
  Receive Date: 20220523
  Receipt Date: 20220523
  Transmission Date: 20220720
  Serious: Yes (Other)
  Sender: FDA-Public Use
  Company Number: US-SA-SAC20220520000018

PATIENT
  Age: 53 Year
  Sex: Male

DRUGS (1)
  1. ZANTAC [Suspect]
     Active Substance: RANITIDINE HYDROCHLORIDE
     Indication: Dyspepsia
     Dosage: UNK, FREQUENCY -OCCASIONAL UNKNOWN AT THIS TIME
     Dates: start: 198001, end: 200101

REACTIONS (2)
  - Bladder cancer stage III [Unknown]
  - Colorectal cancer stage III [Unknown]

NARRATIVE: CASE EVENT DATE: 20020301
